FAERS Safety Report 9553742 (Version 1)
Quarter: 2013Q3

REPORT INFORMATION
  Report Type: Spontaneous
  Country: US (occurrence: None)
  Receive Date: 20130924
  Receipt Date: 20130924
  Transmission Date: 20140515
  Serious: Yes (Life-Threatening, Hospitalization)
  Sender: FDA-Public Use
  Company Number: None

PATIENT
  Age: 51 Year
  Sex: Male
  Weight: 149.69 kg

DRUGS (1)
  1. VICTOZA [Suspect]
     Dosage: 1.8 MG, ONCE DAILY, GIVEN INTO/UNDER THE SKIN
     Dates: start: 20120301, end: 20130217

REACTIONS (1)
  - Pancreatitis acute [None]
